FAERS Safety Report 14291289 (Version 1)
Quarter: 2017Q4

REPORT INFORMATION
  Report Type: Spontaneous
  Country: NL (occurrence: NL)
  Receive Date: 20171215
  Receipt Date: 20171215
  Transmission Date: 20180321
  Serious: Yes (Hospitalization)
  Sender: FDA-Public Use
  Company Number: NL-TEVA-2017-NL-835935

PATIENT
  Age: 28 Year
  Sex: Female

DRUGS (6)
  1. SULFASALAZINE MAAGSAPRESISTENTE TABLET, 500 MG (MILLIGRAM) [Suspect]
     Active Substance: SULFASALAZINE
     Indication: TENDONITIS
     Dosage: TWICE DAILY 2 TABLETS
     Route: 065
     Dates: start: 20171019, end: 20171103
  2. SULFASALAZINE MAAGSAPRESISTENTE TABLET, 500 MG (MILLIGRAM) [Suspect]
     Active Substance: SULFASALAZINE
     Indication: ARTHRITIS
  3. SULFASALAZINE MAAGSAPRESISTENTE TABLET, 500 MG (MILLIGRAM) [Suspect]
     Active Substance: SULFASALAZINE
     Indication: ANTINUCLEAR ANTIBODY
  4. PREDNISOLON 5 MG [Concomitant]
     Dosage: THERAPY START DATE AND END DATE : ASKED BUT UNKNOWN
     Route: 065
  5. MICROGYNON 30 [Concomitant]
     Active Substance: ETHINYL ESTRADIOL\LEVONORGESTREL ACETATE
     Dosage: THERAPY START DATE AND END DATE : ASKED BUT UNKNOWN
     Route: 065
  6. HYDROXOCOBALAMINE 500 [Concomitant]
     Dosage: THERAPY START DATE AND END DATE : ASKED BUT UNKNOWN
     Route: 065

REACTIONS (1)
  - Chest discomfort [Recovered/Resolved]

NARRATIVE: CASE EVENT DATE: 20171103
